FAERS Safety Report 5666252-5 (Version None)
Quarter: 2008Q1

REPORT INFORMATION
  Report Type: 
  Country: None (occurrence: None)
  Receive Date: 20080314
  Receipt Date: 20071208
  Transmission Date: 20080703
  Serious: No
  Sender: FDA-Public Use
  Company Number: US-ABBOTT-07P-163-0430203-00

PATIENT
  Sex: Female
  Weight: 89.892 kg

DRUGS (1)
  1. HUMIRA [Suspect]
     Indication: PSORIATIC ARTHROPATHY
     Route: 058
     Dates: start: 20071206

REACTIONS (5)
  - CHILLS [None]
  - HEADACHE [None]
  - NASAL CONGESTION [None]
  - PAIN [None]
  - RESPIRATORY TRACT CONGESTION [None]
